FAERS Safety Report 10488477 (Version 2)
Quarter: 2014Q4

REPORT INFORMATION
  Report Type: Spontaneous
  Country: US (occurrence: None)
  Receive Date: 20140924
  Receipt Date: 20141024
  Transmission Date: 20150528
  Serious: Yes (Hospitalization)
  Sender: FDA-Public Use
  Company Number: GTI002541

PATIENT
  Age: 54 Year
  Sex: Male
  Weight: 116 kg

DRUGS (13)
  1. DUONEB [Concomitant]
     Active Substance: ALBUTEROL SULFATE\IPRATROPIUM BROMIDE
  2. PROLASTIN-C [Suspect]
     Active Substance: .ALPHA.1-PROTEINASE INHIBITOR HUMAN
     Indication: ALPHA-1 ANTI-TRYPSIN DEFICIENCY
     Route: 042
     Dates: start: 2002
  3. CHLORIDE [Concomitant]
     Active Substance: CHLORIDE ION
  4. FUROSEMIDE. [Concomitant]
     Active Substance: FUROSEMIDE
  5. LINSINOPRIL [Concomitant]
  6. LEXAPRO [Concomitant]
     Active Substance: ESCITALOPRAM OXALATE
  7. SYMBICORT [Concomitant]
     Active Substance: BUDESONIDE\FORMOTEROL FUMARATE DIHYDRATE
  8. KOMBIGLYZE XR [Concomitant]
     Active Substance: METFORMIN HYDROCHLORIDE\SAXAGLIPTIN HYDROCHLORIDE
  9. ISOSOBIDE MONONITRATE [Concomitant]
  10. PREDNISONE. [Concomitant]
     Active Substance: PREDNISONE
  11. POTASSIUM CHLORIDE. [Concomitant]
     Active Substance: POTASSIUM CHLORIDE
  12. METFORMIN [Concomitant]
     Active Substance: METFORMIN HYDROCHLORIDE
  13. ALBUTEROL /00239501/ [Concomitant]

REACTIONS (8)
  - Dyspnoea [None]
  - Tremor [None]
  - Respiratory distress [None]
  - Infusion related reaction [None]
  - Muscle spasms [None]
  - Bacterial infection [None]
  - Implant site swelling [None]
  - Chills [None]

NARRATIVE: CASE EVENT DATE: 20140825
